FAERS Safety Report 5785344-3 (Version None)
Quarter: 2008Q2

REPORT INFORMATION
  Report Type: 
  Country: None (occurrence: None)
  Receive Date: 20080624
  Receipt Date: 20080616
  Transmission Date: 20081010
  Serious: Yes (Death)
  Sender: FDA-Public Use
  Company Number: US-GENENTECH-237478

PATIENT
  Sex: Male
  Weight: 65.306 kg

DRUGS (8)
  1. BEVACIZUMAB [Suspect]
     Indication: COLORECTAL CANCER METASTATIC
     Dosage: 552 MG, Q2W
     Route: 042
     Dates: start: 20061206, end: 20070212
  2. CETUXIMAB [Suspect]
     Indication: COLORECTAL CANCER METASTATIC
     Dosage: 470 MG, 1/WEEK
     Route: 042
     Dates: start: 20061206, end: 20070212
  3. FLUOROURACIL [Suspect]
     Indication: COLORECTAL CANCER METASTATIC
     Dosage: 3384 MG, Q2W
     Route: 042
     Dates: start: 20061206, end: 20070212
  4. FLUOROURACIL [Suspect]
     Dosage: 564 MG, UNK
     Route: 042
     Dates: start: 20061206, end: 20070212
  5. LEUCOVORIN CALCIUM [Suspect]
     Indication: COLORECTAL CANCER METASTATIC
     Dosage: 752 MG, Q2W
     Route: 042
     Dates: start: 20061206, end: 20070212
  6. BENICAR [Concomitant]
     Indication: HYPERTENSION
     Dosage: 200 MG, QD
     Route: 048
     Dates: end: 20070218
  7. NORVASC [Concomitant]
     Indication: HYPERTENSION
     Dosage: 16 MG, QD
     Route: 048
     Dates: end: 20070218
  8. VICODIN [Concomitant]
     Indication: PAIN
     Dosage: UNK, UNK
     Dates: start: 20070216, end: 20070218

REACTIONS (1)
  - PERITONITIS [None]
